FAERS Safety Report 4342524-1 (Version None)
Quarter: 2004Q2

REPORT INFORMATION
  Report Type: 
  Country: None (occurrence: None)
  Receive Date: 20040414
  Receipt Date: 20040329
  Transmission Date: 20050107
  Serious: Yes (Other)
  Sender: FDA-Public Use
  Company Number: 601138

PATIENT
  Age: 5 Day
  Sex: Male
  Weight: 3.3 kg

DRUGS (3)
  1. GAMMAGARD S/D [Suspect]
     Indication: BLOOD IMMUNOGLOBULIN G DECREASED
     Dosage: 3 GM; ONCE; INTRAVENOUS
     Route: 042
     Dates: start: 20040307, end: 20040307
  2. EPINEPHRINE [Concomitant]
  3. DOPAMINE HCL [Concomitant]

REACTIONS (8)
  - BLISTER [None]
  - BLOOD ALBUMIN DECREASED [None]
  - DERMATITIS EXFOLIATIVE [None]
  - INFUSION RELATED REACTION [None]
  - INFUSION SITE OEDEMA [None]
  - PROTEIN TOTAL DECREASED [None]
  - SKIN DISCOLOURATION [None]
  - VENOUS THROMBOSIS LIMB [None]
